FAERS Safety Report 23352291 (Version 1)
Quarter: 2023Q4

REPORT INFORMATION
  Report Type: Spontaneous
  Country: FR (occurrence: FR)
  Receive Date: 20231229
  Receipt Date: 20231229
  Transmission Date: 20240109
  Serious: Yes (Other)
  Sender: FDA-Public Use
  Company Number: FR-SANDOZ-SDZ2023FR073858

PATIENT
  Age: 33 Year
  Sex: Female

DRUGS (3)
  1. AMOXICILLIN TRIHYDRATE [Suspect]
     Active Substance: AMOXICILLIN
     Indication: Tracheitis
     Dosage: 500 MG, 2 TABLETS 3 TIMES A DAY FOR 8 DAYS
     Route: 065
     Dates: start: 20231222
  2. CODEINE\SISYMBRIUM OFFICINALE WHOLE [Concomitant]
     Active Substance: CODEINE\SISYMBRIUM OFFICINALE WHOLE
     Indication: Product used for unknown indication
     Dosage: UNK
     Route: 065
  3. PREDNISONE [Concomitant]
     Active Substance: PREDNISONE
     Indication: Product used for unknown indication
     Dosage: UNK
     Route: 065

REACTIONS (1)
  - Rectal haemorrhage [Unknown]

NARRATIVE: CASE EVENT DATE: 20231222
